FAERS Safety Report 5207325-0 (Version None)
Quarter: 2007Q1

REPORT INFORMATION
  Report Type: 
  Country: None (occurrence: None)
  Receive Date: 20070110
  Receipt Date: 20061225
  Transmission Date: 20070707
  Serious: Yes (Other)
  Sender: FDA-Public Use
  Company Number: 2003JP006381

PATIENT
  Age: 15 Year
  Sex: Male
  Weight: 35 kg

DRUGS (11)
  1. PROGRAF [Suspect]
     Indication: HEART TRANSPLANT
     Dosage: 2 MG, BID, ORAL
     Route: 048
     Dates: start: 20000625, end: 20021015
  2. CELLCEPT [Concomitant]
  3. PREDNISOLONE [Concomitant]
  4. ZOVIRAX [Concomitant]
  5. PRAVASTATIN [Concomitant]
  6. HERBESSOR R (DILTIAZEM HYDROCHLORIDE) [Concomitant]
  7. ENALAPRIL MALEATE [Concomitant]
  8. GASTER [Concomitant]
  9. MAGNESIUM OXIDE (MAGNESIUM OXIDE) [Concomitant]
  10. BUFFERIN [Concomitant]
  11. HUMACART-N (INSULIN HUMAN) [Concomitant]

REACTIONS (14)
  - ACNE [None]
  - ATRIOVENTRICULAR BLOCK [None]
  - CARDIAC ARREST [None]
  - COMPLICATIONS OF TRANSPLANTED HEART [None]
  - CORONARY ARTERY DISEASE [None]
  - CYTOMEGALOVIRUS INFECTION [None]
  - DIABETES MELLITUS [None]
  - DILATATION VENTRICULAR [None]
  - DRUG TOXICITY [None]
  - EJECTION FRACTION DECREASED [None]
  - GRAFT DYSFUNCTION [None]
  - HEART SOUNDS ABNORMAL [None]
  - HEART TRANSPLANT REJECTION [None]
  - PANCREATIC DISORDER [None]
